FAERS Safety Report 12449212 (Version 1)
Quarter: 2016Q2

REPORT INFORMATION
  Report Type: Spontaneous
  Country: US (occurrence: US)
  Receive Date: 20160608
  Receipt Date: 20160608
  Transmission Date: 20160815
  Serious: Yes (Hospitalization)
  Sender: FDA-Public Use
  Company Number: US-ACTELION-A-US2016-137178

PATIENT
  Age: 49 Year
  Sex: Female

DRUGS (16)
  1. AMLODIPINE BESILATE [Concomitant]
     Active Substance: AMLODIPINE BESYLATE
  2. CYMBALTA [Concomitant]
     Active Substance: DULOXETINE HYDROCHLORIDE
  3. HYDROCODONE BITARTRATE AND ACETAMINOPHEN [Concomitant]
     Active Substance: ACETAMINOPHEN\HYDROCODONE BITARTRATE
  4. OMEPRAZOLE. [Concomitant]
     Active Substance: OMEPRAZOLE
  5. BACLOFEN. [Concomitant]
     Active Substance: BACLOFEN
  6. METOPROLOL. [Concomitant]
     Active Substance: METOPROLOL
  7. AMOXICILLIN AND CLAVULANATE POTASSIUM [Concomitant]
     Active Substance: AMOXICILLIN\CLAVULANATE POTASSIUM
  8. LEVETIRACETAM. [Concomitant]
     Active Substance: LEVETIRACETAM
  9. METFORMIN [Concomitant]
     Active Substance: METFORMIN HYDROCHLORIDE
  10. PREDNISONE. [Concomitant]
     Active Substance: PREDNISONE
  11. MORPHINE SULFATE. [Concomitant]
     Active Substance: MORPHINE SULFATE
  12. GABAPENTIN. [Concomitant]
     Active Substance: GABAPENTIN
  13. MYCOPHENOLATE MOFETIL. [Concomitant]
     Active Substance: MYCOPHENOLATE MOFETIL
  14. TRACLEER [Suspect]
     Active Substance: BOSENTAN
     Indication: COR PULMONALE
     Dosage: 125 MG, BID
     Route: 048
     Dates: start: 20160404
  15. ALENDRONATE [Concomitant]
     Active Substance: ALENDRONATE SODIUM
  16. LISINOPRIL. [Concomitant]
     Active Substance: LISINOPRIL

REACTIONS (2)
  - Back injury [Unknown]
  - Fall [Unknown]
